FAERS Safety Report 7989966-0 (Version None)
Quarter: 2011Q4

REPORT INFORMATION
  Report Type: 
  Country: None (occurrence: None)
  Receive Date: 20111219
  Receipt Date: 20110719
  Transmission Date: 20120403
  Serious: No
  Sender: FDA-Public Use
  Company Number: US-ASTRAZENECA-2011SE43202

PATIENT
  Age: 67 Year
  Sex: Male

DRUGS (2)
  1. FLOMAX [Concomitant]
  2. CRESTOR [Suspect]
     Route: 048
     Dates: start: 20110715, end: 20110715

REACTIONS (3)
  - RESTLESSNESS [None]
  - MYALGIA [None]
  - ABDOMINAL PAIN [None]
